FAERS Safety Report 5599683-2 (Version None)
Quarter: 2008Q1

REPORT INFORMATION
  Report Type: 
  Country: None (occurrence: None)
  Receive Date: 20080118
  Receipt Date: 20080118
  Transmission Date: 20080703
  Serious: No
  Sender: FDA-Public Use
  Company Number: None

PATIENT
  Age: 76 Year
  Sex: Male

DRUGS (1)
  1. QUETIAPINE FUMARATE [Suspect]
     Indication: AGITATION
     Dosage: 100MG PO X 1
     Route: 048
     Dates: start: 20071230

REACTIONS (3)
  - OXYGEN SATURATION DECREASED [None]
  - SOMNOLENCE [None]
  - THERAPEUTIC RESPONSE DECREASED [None]
